FAERS Safety Report 20962469 (Version 1)
Quarter: 2022Q2

REPORT INFORMATION
  Report Type: Spontaneous
  Country: US (occurrence: None)
  Receive Date: 20220615
  Receipt Date: 20220615
  Transmission Date: 20220721
  Serious: Yes (Life-Threatening, Hospitalization)
  Sender: FDA-Public Use
  Company Number: None

PATIENT
  Age: 35 Year
  Sex: Male
  Weight: 137.25 kg

DRUGS (15)
  1. ALBUTEROL SULFATE [Suspect]
     Active Substance: ALBUTEROL SULFATE
     Indication: Cough
     Dosage: OTHER STRENGTH : MCG;?OTHER QUANTITY : 1 PUFF(S);?FREQUENCY : EVERY 4 HOURS;?
     Route: 048
     Dates: start: 20200421
  2. ALBUTEROL SULFATE [Suspect]
     Active Substance: ALBUTEROL SULFATE
     Indication: Wheezing
  3. ALBUTEROL SULFATE [Suspect]
     Active Substance: ALBUTEROL SULFATE
     Indication: Cough
     Dosage: OTHER STRENGTH : MCG;?OTHER QUANTITY : 1 PUFF(S);?FREQUENCY : EVERY 4 HOURS;?
     Route: 048
     Dates: start: 20220614
  4. ALBUTEROL SULFATE [Suspect]
     Active Substance: ALBUTEROL SULFATE
     Indication: Wheezing
  5. SUCRALFATE [Concomitant]
     Active Substance: SUCRALFATE
  6. CARVEDILOL [Concomitant]
     Active Substance: CARVEDILOL
  7. HYDRALAZINE [Concomitant]
     Active Substance: HYDRALAZINE HYDROCHLORIDE
  8. PANTOPRAZOLE [Concomitant]
     Active Substance: PANTOPRAZOLE
  9. SPIRONOLACTION [Concomitant]
  10. ALBUTEROL SULFATE [Concomitant]
  11. CLARITIN [Concomitant]
     Active Substance: LORATADINE
  12. MULTI VITAMIN [Concomitant]
  13. ALIGN [Concomitant]
     Active Substance: BIFIDOBACTERIUM LONGUM SUBSP. INFANTIS
  14. VITAMIN D3 [Concomitant]
     Active Substance: CHOLECALCIFEROL
  15. TYLENOL [Concomitant]

REACTIONS (5)
  - Choking [None]
  - Cough [None]
  - Device breakage [None]
  - Emotional disorder [None]
  - Manufacturing materials issue [None]

NARRATIVE: CASE EVENT DATE: 20220421
